FAERS Safety Report 23101283 (Version 1)
Quarter: 2023Q4

REPORT INFORMATION
  Report Type: Spontaneous
  Country: CN (occurrence: CN)
  Receive Date: 20231024
  Receipt Date: 20231024
  Transmission Date: 20240110
  Serious: Yes (Other)
  Sender: FDA-Public Use
  Company Number: CN-PFIZER INC-PV202300174495

PATIENT
  Age: 32 Year
  Sex: Female
  Weight: 58 kg

DRUGS (3)
  1. HEMABATE [Suspect]
     Active Substance: CARBOPROST TROMETHAMINE
     Indication: Prophylaxis
     Dosage: 250 UG, 1X/DAY
     Route: 030
     Dates: start: 20231013, end: 20231013
  2. COMPOUND SODIUM CHLORIDE [CALCIUM CHLORIDE;POTASSIUM CHLORIDE;SODIUM C [Concomitant]
     Indication: Fluid replacement
     Dosage: 500 ML, 1X/DAY
     Route: 041
     Dates: start: 20231013, end: 20231013
  3. OXYTOCIN [Concomitant]
     Active Substance: OXYTOCIN
     Indication: Uterine hypotonus
     Dosage: 20 IU, 1X/DAY
     Route: 041
     Dates: start: 20231013, end: 20231013

REACTIONS (5)
  - Nausea [Recovered/Resolved]
  - Dizziness [Recovered/Resolved]
  - Abdominal pain [Recovered/Resolved]
  - Blood pressure increased [Recovered/Resolved]
  - Off label use [Unknown]

NARRATIVE: CASE EVENT DATE: 20231013
